FAERS Safety Report 4639025-X (Version None)
Quarter: 2005Q2

REPORT INFORMATION
  Report Type: 
  Country: None (occurrence: None)
  Receive Date: 20050415
  Receipt Date: 20050329
  Transmission Date: 20051028
  Serious: Yes (Death)
  Sender: FDA-Public Use
  Company Number: GBS050216765

PATIENT
  Age: 77 Year
  Sex: Female
  Weight: 80 kg

DRUGS (12)
  1. FORTEO [Suspect]
     Indication: OSTEOPOROSIS
     Dosage: 20 UG DAY
     Dates: start: 20041106
  2. ASPIRIN [Concomitant]
  3. ARTHROTEC [Concomitant]
  4. PREDNISOLONE [Concomitant]
  5. LEFLUNOMIDE [Concomitant]
  6. OXYBUTYNIN [Concomitant]
  7. AMITRIPTYLINE HCL TAB [Concomitant]
  8. MORPHINE SULFATE [Concomitant]
  9. RISEDRONATE (RISEDRONATE) [Concomitant]
  10. ACETAMINOPHEN [Concomitant]
  11. LANSOPRAZOLE [Concomitant]
  12. FUROSEMIDE [Concomitant]

REACTIONS (4)
  - CARDIAC FAILURE CONGESTIVE [None]
  - MYOCARDIAL ISCHAEMIA [None]
  - RHEUMATOID ARTHRITIS [None]
  - SUDDEN DEATH [None]
